FAERS Safety Report 7552682-3 (Version None)
Quarter: 2011Q2

REPORT INFORMATION
  Report Type: 
  Country: None (occurrence: None)
  Receive Date: 20110616
  Receipt Date: 20110613
  Transmission Date: 20111010
  Serious: Yes (Death)
  Sender: FDA-Public Use
  Company Number: ML-BAXTER-2011BH019391

PATIENT

DRUGS (8)
  1. VINBLASTINE SULFATE [Suspect]
     Indication: HODGKIN'S DISEASE
     Route: 065
  2. PROCARBAZINE HYDROCHLORIDE [Suspect]
     Indication: HODGKIN'S DISEASE
     Route: 065
  3. PREDNISONE [Suspect]
     Indication: HODGKIN'S DISEASE
     Route: 065
  4. VINCRISTINE [Suspect]
     Indication: HODGKIN'S DISEASE
     Route: 065
  5. ADRIAMYCIN PFS [Suspect]
     Indication: HODGKIN'S DISEASE
     Route: 065
  6. BLEOMYCIN [Suspect]
     Indication: HODGKIN'S DISEASE
     Route: 065
  7. CYCLOPHOSPHAMIDE [Suspect]
     Indication: HODGKIN'S DISEASE
     Route: 065
  8. HYDROCORTISONE SODIUM PHOSPHATE [Concomitant]
     Indication: PREMEDICATION
     Route: 042

REACTIONS (1)
  - FEBRILE NEUTROPENIA [None]
